APPROVED DRUG PRODUCT: GRISEOFULVIN
Active Ingredient: GRISEOFULVIN, MICROSIZE
Strength: 125MG/5ML
Dosage Form/Route: SUSPENSION;ORAL
Application: A065200 | Product #001 | TE Code: AB
Applicant: CHARTWELL RX SCIENCES LLC
Approved: Mar 2, 2005 | RLD: No | RS: No | Type: RX